FAERS Safety Report 13717134 (Version 2)
Quarter: 2018Q2

REPORT INFORMATION
  Report Type: Report from Study
  Country: US (occurrence: BR)
  Receive Date: 20170705
  Receipt Date: 20180425
  Transmission Date: 20180711
  Serious: Yes (Death, Hospitalization, Other)
  Sender: FDA-Public Use
  Company Number: US-SUNOVION-2017SUN002832

PATIENT
  Age: 95 Year
  Sex: Male
  Weight: 56 kg

DRUGS (6)
  1. FUROSEMIDE. [Concomitant]
     Active Substance: FUROSEMIDE
     Dosage: 20 MG, UNK
     Dates: end: 2017
  2. DOMPERIDONE [Concomitant]
     Active Substance: DOMPERIDONE
     Dosage: 10 MG, UNK
     Dates: end: 201702
  3. INDACATEROL [Suspect]
     Active Substance: INDACATEROL
     Indication: ASTHMA
  4. INDACATEROL [Suspect]
     Active Substance: INDACATEROL
     Indication: CHRONIC OBSTRUCTIVE PULMONARY DISEASE
  5. INDACATEROL [Suspect]
     Active Substance: INDACATEROL
     Indication: EMPHYSEMA
     Dosage: 1 DF, QD (1 LITTLE PUFF)
     Route: 048
     Dates: start: 2015, end: 2017
  6. CARVEDILOL. [Concomitant]
     Active Substance: CARVEDILOL
     Dosage: 25 MG, UNK
     Dates: end: 201702

REACTIONS (10)
  - Cardio-respiratory arrest [Fatal]
  - Respiratory tract oedema [Fatal]
  - Asthenia [Unknown]
  - Respiratory disorder [Unknown]
  - Oxygen saturation decreased [Unknown]
  - Malaise [Unknown]
  - Dyspnoea [Unknown]
  - Mobility decreased [Unknown]
  - Scar [Unknown]
  - Decubitus ulcer [Unknown]

NARRATIVE: CASE EVENT DATE: 201612
